FAERS Safety Report 8582991-0 (Version None)
Quarter: 2012Q3

REPORT INFORMATION
  Report Type: 
  Country: None (occurrence: None)
  Receive Date: 20120809
  Receipt Date: 20120803
  Transmission Date: 20120928
  Serious: Yes (Death, Hospitalization)
  Sender: FDA-Public Use
  Company Number: JP-PFIZER INC-2012042535

PATIENT
  Age: 71 Year
  Sex: Male
  Weight: 56.4 kg

DRUGS (16)
  1. TORISEL [Suspect]
     Indication: RENAL CELL CARCINOMA
     Dosage: 25 MG, WEEKLY
     Route: 041
     Dates: start: 20110516, end: 20110523
  2. LOXONIN [Concomitant]
     Indication: HEADACHE
     Dosage: AS NEEDED (60 MG/DAY)
     Route: 048
  3. TORISEL [Suspect]
     Dosage: 25 MG, UNK
     Route: 041
     Dates: start: 20110706, end: 20110706
  4. ADENOSINE [Concomitant]
     Indication: OTIC CANCER METASTATIC
     Dosage: 1 G, 3X/DAY
     Route: 048
  5. LENDORMIN D [Concomitant]
     Dosage: 0.25 MG, 1X/DAY
     Route: 048
  6. TAMSULOSIN HCL [Concomitant]
     Dosage: 0.2 MG, 1X/DAY
     Route: 048
  7. AMARYL [Concomitant]
     Dosage: 1 MG, 2X/DAY
     Route: 048
  8. VITAMIN B12 [Concomitant]
     Indication: OTIC CANCER METASTATIC
     Dosage: 500 UG, 3X/DAY
     Route: 048
  9. NORVASC [Concomitant]
     Dosage: 2.5 MG, 1X/DAY
     Route: 048
  10. SELBEX [Concomitant]
     Dosage: 50 MG, 3X/DAY
     Route: 048
  11. CHLOR-TRIMETON [Concomitant]
     Indication: PROPHYLAXIS
     Dosage: 10 MG, 1X/DAY
     Route: 042
     Dates: start: 20110516
  12. MAGMITT [Concomitant]
     Indication: METASTASES TO CENTRAL NERVOUS SYSTEM
     Dosage: 250 MG, 3X/DAY
     Route: 048
  13. TORISEL [Suspect]
     Dosage: 25 MG, UNK
     Route: 041
     Dates: start: 20110713, end: 20110713
  14. CARNACULIN [Concomitant]
     Indication: OTIC CANCER METASTATIC
     Dosage: 25 IU, 3X/DAY
     Route: 048
  15. MUCOSTA [Concomitant]
     Indication: HEADACHE
     Dosage: AS NEEDED (100 MG/DAY)
     Route: 048
  16. TORISEL [Suspect]
     Dosage: 25 MG, UNK
     Route: 041
     Dates: start: 20110628, end: 20110628

REACTIONS (4)
  - BRAIN OEDEMA [None]
  - DISEASE PROGRESSION [None]
  - PNEUMONIA [None]
  - RENAL CELL CARCINOMA [None]
